FAERS Safety Report 22530869 (Version 1)
Quarter: 2023Q2

REPORT INFORMATION
  Report Type: Spontaneous
  Country: CN (occurrence: CN)
  Receive Date: 20230607
  Receipt Date: 20230607
  Transmission Date: 20230721
  Serious: Yes (Other)
  Sender: FDA-Public Use
  Company Number: CN-SUN PHARMACEUTICAL INDUSTRIES LTD-2023R1-390265

PATIENT
  Age: 60 Year
  Sex: Female

DRUGS (1)
  1. OXCARBAZEPINE [Suspect]
     Active Substance: OXCARBAZEPINE
     Indication: Epilepsy
     Dosage: 0.3 GRAM, BID
     Route: 048

REACTIONS (5)
  - Cardiotoxicity [Unknown]
  - Atrioventricular block [Unknown]
  - Atrial fibrillation [Recovering/Resolving]
  - Cardiac arrest [Recovering/Resolving]
  - Sinoatrial block [Unknown]
